FAERS Safety Report 25190934 (Version 1)
Quarter: 2025Q2

REPORT INFORMATION
  Report Type: Spontaneous
  Country: FR (occurrence: FR)
  Receive Date: 20250411
  Receipt Date: 20250411
  Transmission Date: 20250717
  Serious: Yes (Disabling)
  Sender: TEVA
  Company Number: None

PATIENT
  Age: 54 Year
  Sex: Female
  Weight: 51 kg

DRUGS (7)
  1. IVERMECTIN [Suspect]
     Active Substance: IVERMECTIN
     Indication: SARS-CoV-2 antibody test positive
     Route: 048
     Dates: start: 202501
  2. IVERMECTIN [Suspect]
     Active Substance: IVERMECTIN
     Indication: SARS-CoV-2 antibody test positive
     Route: 048
     Dates: start: 202409, end: 202412
  3. LEVOCETIRIZINE DIHYDROCHLORIDE [Concomitant]
     Active Substance: LEVOCETIRIZINE DIHYDROCHLORIDE
     Indication: Post-acute COVID-19 syndrome
     Route: 048
  4. AMITRIPTYLINE HYDROCHLORIDE [Concomitant]
     Active Substance: AMITRIPTYLINE HYDROCHLORIDE
     Indication: Post-acute COVID-19 syndrome
     Route: 048
  5. ACETAMINOPHEN [Concomitant]
     Active Substance: ACETAMINOPHEN
     Indication: Post-acute COVID-19 syndrome
     Route: 048
  6. IBUPROFEN [Concomitant]
     Active Substance: IBUPROFEN
     Indication: Post-acute COVID-19 syndrome
     Route: 048
  7. SERTRALINE HYDROCHLORIDE [Concomitant]
     Active Substance: SERTRALINE HYDROCHLORIDE
     Indication: Post-acute COVID-19 syndrome
     Route: 048

REACTIONS (8)
  - Muscle fatigue [Not Recovered/Not Resolved]
  - Product administered from unauthorised provider [Recovered/Resolved]
  - Photopsia [Not Recovered/Not Resolved]
  - Keratitis [Not Recovered/Not Resolved]
  - Intentional product use issue [Recovered/Resolved]
  - Headache [Not Recovered/Not Resolved]
  - Eye pain [Not Recovered/Not Resolved]
  - Accidental overdose [Recovered/Resolved]

NARRATIVE: CASE EVENT DATE: 20240901
